FAERS Safety Report 4971034-3 (Version None)
Quarter: 2006Q2

REPORT INFORMATION
  Report Type: 
  Country: None (occurrence: None)
  Receive Date: 20060412
  Receipt Date: 20060327
  Transmission Date: 20061013
  Serious: Yes (Other)
  Sender: FDA-Public Use
  Company Number: NSADSS2001035255

PATIENT
  Sex: Male

DRUGS (3)
  1. REMINYL [Suspect]
     Route: 048
     Dates: start: 20010101
  2. ANTIDEPRESSANT [Concomitant]
     Route: 065
  3. ANTI HYPERLIPIDEMIC AGENT [Concomitant]
     Route: 065

REACTIONS (1)
  - SUICIDE ATTEMPT [None]
